FAERS Safety Report 13141350 (Version 8)
Quarter: 2018Q4

REPORT INFORMATION
  Report Type: Spontaneous
  Country: US (occurrence: US)
  Receive Date: 20170123
  Receipt Date: 20181113
  Transmission Date: 20190204
  Serious: No
  Sender: FDA-Public Use
  Company Number: US-PFIZER INC-2017029960

PATIENT
  Age: 61 Year
  Sex: Female
  Weight: 55.79 kg

DRUGS (10)
  1. LYRICA [Suspect]
     Active Substance: PREGABALIN
     Indication: NEURALGIA
     Dosage: UNK
  2. ESTROGEN [Suspect]
     Active Substance: ESTROGENS
     Dosage: UNK
  3. ASHWAGANDA [Concomitant]
     Indication: STRESS
     Dosage: 2 DF, DAILY (TWO CAPSULES A DAY)
  4. NATROL ALPHA LIPOIC ACID [Concomitant]
     Dosage: 600 MG, DAILY
  5. CLONAZEPAM. [Suspect]
     Active Substance: CLONAZEPAM
     Dosage: UNK
  6. ASHWAGANDA [Concomitant]
     Dosage: 350 MG, UNK
  7. PROGESTERONE. [Suspect]
     Active Substance: PROGESTERONE
     Dosage: UNK
  8. TESTOSTERONE. [Suspect]
     Active Substance: TESTOSTERONE
     Dosage: UNK
  9. VALPROIC ACID. [Concomitant]
     Active Substance: VALPROIC ACID
     Indication: STRESS
     Dosage: 3X/DAY (600MG IN THE MORNING, 200MG IN THE AFTERNOON AND NIGHT)
  10. LYRICA [Suspect]
     Active Substance: PREGABALIN
     Indication: FIBROMYALGIA
     Dosage: 200 MG, 3X/DAY
     Route: 048
     Dates: start: 2001

REACTIONS (11)
  - Hair disorder [Unknown]
  - Condition aggravated [Unknown]
  - Drug tolerance [Unknown]
  - Alopecia [Unknown]
  - Hypersomnia [Unknown]
  - Neuralgia [Unknown]
  - Peripheral swelling [Unknown]
  - Musculoskeletal pain [Unknown]
  - Dyspnoea [Unknown]
  - Pain in extremity [Unknown]
  - Drug ineffective [Not Recovered/Not Resolved]
